FAERS Safety Report 10968257 (Version 1)
Quarter: 2015Q1

REPORT INFORMATION
  Report Type: Spontaneous
  Country: CN (occurrence: CN)
  Receive Date: 20150330
  Receipt Date: 20150330
  Transmission Date: 20150721
  Serious: Yes (Hospitalization, Other)
  Sender: FDA-Public Use
  Company Number: CN-JNJFOC-20150313783

PATIENT

DRUGS (1)
  1. RISPERDAL [Suspect]
     Active Substance: RISPERIDONE
     Indication: MANIA
     Route: 048

REACTIONS (13)
  - Headache [Unknown]
  - Weight increased [Unknown]
  - Tremor [Unknown]
  - Electrocardiogram abnormal [Unknown]
  - Akathisia [Unknown]
  - Somnolence [Unknown]
  - Mania [Unknown]
  - Insomnia [Unknown]
  - Disturbance in social behaviour [Unknown]
  - Abnormal behaviour [Unknown]
  - Hospitalisation [Unknown]
  - Leukopenia [Unknown]
  - Dizziness [Unknown]
